FAERS Safety Report 6110662-9 (Version None)
Quarter: 2009Q1

REPORT INFORMATION
  Report Type: 
  Country: None (occurrence: None)
  Receive Date: 20090310
  Receipt Date: 20090223
  Transmission Date: 20090719
  Serious: Yes (Death)
  Sender: FDA-Public Use
  Company Number: MX-GENENTECH-278611

PATIENT
  Age: 17 Year
  Sex: Female

DRUGS (9)
  1. RITUXIMAB [Suspect]
     Indication: B-CELL TYPE ACUTE LEUKAEMIA
     Dosage: 10 MG, 1/WEEK
     Route: 039
  2. VINCRISTINE [Suspect]
     Indication: B-CELL TYPE ACUTE LEUKAEMIA
     Dosage: 1.5 MG/M2, 1/WEEK
  3. PREDNISONE [Suspect]
     Indication: B-CELL TYPE ACUTE LEUKAEMIA
     Dosage: 60 MG/M2, UNK
     Route: 048
  4. ASPARAGINASE [Suspect]
     Indication: B-CELL TYPE ACUTE LEUKAEMIA
     Dosage: 6000 UNK, UNK
  5. ADRIAMYCIN PFS [Suspect]
     Indication: B-CELL TYPE ACUTE LEUKAEMIA
     Dosage: 40 MG/M2, UNK
  6. METHOTREXATE [Suspect]
     Indication: B-CELL TYPE ACUTE LEUKAEMIA
     Dosage: 40 MG/M2, 1/WEEK
  7. CYTARABINE [Suspect]
     Indication: B-CELL TYPE ACUTE LEUKAEMIA
     Dosage: 70 MG, 1/WEEK
  8. HYDROCORTISONE [Suspect]
     Indication: B-CELL TYPE ACUTE LEUKAEMIA
     Dosage: 37.5 MG, 1/WEEK
     Route: 037
  9. MERCAPTOPURINE [Suspect]
     Indication: B-CELL TYPE ACUTE LEUKAEMIA
     Dosage: 50 MG/M2, UNK

REACTIONS (1)
  - BONE MARROW DISORDER [None]
